FAERS Safety Report 11967145 (Version 2)
Quarter: 2016Q1

REPORT INFORMATION
  Report Type: Spontaneous
  Country: US (occurrence: US)
  Receive Date: 20160127
  Receipt Date: 20160208
  Transmission Date: 20160526
  Serious: No
  Sender: FDA-Public Use
  Company Number: US-BAYER-2016-016056

PATIENT
  Age: 42 Year
  Sex: Female
  Weight: 99.51 kg

DRUGS (1)
  1. MIRENA [Suspect]
     Active Substance: LEVONORGESTREL
     Indication: CONTRACEPTION
     Dosage: 20 MCG/24HR, CONT
     Route: 015
     Dates: start: 20141015, end: 20160115

REACTIONS (2)
  - Device expulsion [None]
  - Hypomenorrhoea [None]

NARRATIVE: CASE EVENT DATE: 20160115
